FAERS Safety Report 7874058-1 (Version None)
Quarter: 2011Q4

REPORT INFORMATION
  Report Type: 
  Country: None (occurrence: None)
  Receive Date: 20111030
  Receipt Date: 20110513
  Transmission Date: 20120403
  Serious: No
  Sender: FDA-Public Use
  Company Number: US-AMGEN-USASP2011024998

PATIENT
  Age: 60 Year
  Sex: Female

DRUGS (2)
  1. ENBREL [Suspect]
     Indication: SPONDYLOARTHROPATHY
     Dosage: 50 MG, QWK
     Dates: start: 20110101
  2. TREXALL [Concomitant]

REACTIONS (2)
  - INFLAMMATION [None]
  - ARTHRALGIA [None]
